FAERS Safety Report 6539401-4 (Version None)
Quarter: 2010Q1

REPORT INFORMATION
  Report Type: 
  Country: None (occurrence: None)
  Receive Date: 20100112
  Receipt Date: 20090608
  Transmission Date: 20100710
  Serious: Yes (Other)
  Sender: FDA-Public Use
  Company Number: 09-081 (E-09-037)

PATIENT
  Age: 49 Year
  Sex: Female

DRUGS (3)
  1. SOTALOL HYDROCHLORIDE [Suspect]
     Indication: TACHYCARDIA PAROXYSMAL
     Dosage: 1/2 TAB B.I.D. P.O.
     Route: 048
     Dates: start: 20090601, end: 20090608
  2. LEVOTHYROXINE [Concomitant]
  3. ORAL CONTRACEPTIVE [Concomitant]

REACTIONS (1)
  - DRUG INEFFECTIVE [None]
